FAERS Safety Report 9492522 (Version 3)
Quarter: 2013Q4

REPORT INFORMATION
  Report Type: Report from Study
  Country: JP (occurrence: JP)
  Receive Date: 20130830
  Receipt Date: 20131031
  Transmission Date: 20140711
  Serious: Yes (Death)
  Sender: FDA-Public Use
  Company Number: JP-009507513-1308JPN011563

PATIENT
  Age: 50 Year
  Sex: Male
  Weight: 59 kg

DRUGS (19)
  1. CANCIDAS FOR INTRAVENOUS DRIP INFUSION 50MG [Suspect]
     Indication: FEBRILE NEUTROPENIA
     Dosage: 50 MG, QD
     Route: 041
     Dates: start: 20130608, end: 20130702
  2. CANCIDAS FOR INTRAVENOUS DRIP INFUSION 70MG [Suspect]
     Indication: FEBRILE NEUTROPENIA
     Dosage: 70 MG, ONCE
     Route: 041
     Dates: start: 20130607, end: 20130607
  3. MICAFUNGIN SODIUM [Concomitant]
     Indication: FEBRILE NEUTROPENIA
     Dosage: TOTAL DAILY DOSE 50 MG
     Route: 041
     Dates: start: 20130529, end: 20130606
  4. HEPARIN SODIUM [Concomitant]
     Indication: PROPHYLAXIS
     Dosage: TOTAL DAILY DOSE 6-THOUSAND MILLION UNIT
     Route: 051
     Dates: start: 20130522
  5. PROGRAF [Concomitant]
     Indication: PROPHYLAXIS AGAINST GRAFT VERSUS HOST DISEASE
     Dosage: TOTAL DAILY DOSE 1.8 MG,QD
     Route: 051
     Dates: start: 20130529
  6. GRAN [Concomitant]
     Indication: NEUTROPENIA
     Dosage: TOTAL DAILY DOSE 300 MICROGRAM,QD
     Route: 051
     Dates: start: 20130604
  7. FOSCAVIR [Concomitant]
     Indication: CYTOMEGALOVIRUS VIRAEMIA
     Dosage: TOTAL DAILY DOSE 4.5 G,QD
     Route: 051
     Dates: start: 20130530
  8. ZOSYN [Concomitant]
     Indication: FEBRILE NEUTROPENIA
     Dosage: TOTAL DAILY DOSE 13.5 G
     Route: 051
     Dates: start: 20130603, end: 20130607
  9. POTASSIUM CHLORIDE [Concomitant]
     Indication: HYPOKALAEMIA
     Dosage: TOTAL DAILY DOSE 3 DF
     Route: 051
     Dates: start: 20130601
  10. ELEMENMIC [Concomitant]
     Indication: APHAGIA
     Dosage: TOTAL DAILY DOSE 2 ML, QD
     Route: 051
     Dates: start: 20130607
  11. LASIX (FUROSEMIDE) [Concomitant]
     Indication: CARDIAC FAILURE
     Dosage: TOTAL DAILY DOSE 20 MG,QD
     Route: 051
     Dates: start: 20130607
  12. AMIKACIN SULFATE [Concomitant]
     Indication: PNEUMONIA BACTERIAL
     Dosage: TOTAL DAILY DOSE 200 MG,QD
     Route: 051
     Dates: start: 20130605
  13. TAKEPRON [Concomitant]
     Indication: GASTRIC ULCER
     Dosage: TOTAL DAILY DOSE 60 MG
     Route: 051
     Dates: start: 20130605
  14. ACICLOVIN [Concomitant]
     Indication: HERPES VIRUS INFECTION
     Dosage: TOTAL DAILY DOSE 250 MG,QD
     Route: 051
     Dates: start: 20130605
  15. VENILON [Concomitant]
     Indication: HYPOGAMMAGLOBULINAEMIA
     Dosage: TOTAL DAILY DOSE 5 G
     Route: 051
     Dates: start: 20130608
  16. MAGNESIUM SULFATE [Concomitant]
     Indication: HYPOMAGNESAEMIA
     Dosage: TOTAL DAILY DOSE 10 MMOL, QD
     Route: 051
     Dates: start: 20130608
  17. ADONA [Concomitant]
     Indication: CYSTITIS HAEMORRHAGIC
     Dosage: TOTAL DAILY DOSE 100 MG,QD
     Route: 051
     Dates: start: 20130608
  18. TRANSAMIN [Concomitant]
     Indication: CYSTITIS HAEMORRHAGIC
     Dosage: TOTAL DAILY DOSE 1 G,QD
     Route: 051
     Dates: start: 20130608
  19. SOLU-MEDROL [Concomitant]
     Indication: DRUG ERUPTION
     Dosage: TOTAL DAILY DOSE 40 MG,QD
     Route: 051
     Dates: start: 20130611

REACTIONS (3)
  - Pneumonia bacterial [Fatal]
  - Blood alkaline phosphatase increased [Not Recovered/Not Resolved]
  - Blood lactate dehydrogenase increased [Not Recovered/Not Resolved]
